FAERS Safety Report 5190190-8 (Version None)
Quarter: 2006Q4

REPORT INFORMATION
  Report Type: 
  Country: None (occurrence: None)
  Receive Date: 20061222
  Receipt Date: 20061023
  Transmission Date: 20070319
  Serious: No
  Sender: FDA-Public Use
  Company Number: US-AMGEN-US197702

PATIENT
  Age: 78 Year
  Sex: Male

DRUGS (10)
  1. ARANESP [Suspect]
     Indication: RENAL FAILURE CHRONIC
     Route: 058
     Dates: start: 20051001
  2. ISOPTIN [Concomitant]
  3. CARDURA [Concomitant]
  4. FERRO-SEQUELS [Concomitant]
  5. LIPITOR [Concomitant]
  6. ADVAIR DISKUS 100/50 [Concomitant]
     Route: 055
  7. VITAMIN B-12 [Concomitant]
  8. VITAMIN B6 [Concomitant]
  9. FOLIC ACID [Concomitant]
  10. CENTRUM SILVER [Concomitant]

REACTIONS (4)
  - ERUCTATION [None]
  - HAEMOGLOBIN DECREASED [None]
  - HYPERTENSION [None]
  - HYPOTENSION [None]
